FAERS Safety Report 4543176-8 (Version None)
Quarter: 2005Q1

REPORT INFORMATION
  Report Type: 
  Country: None (occurrence: None)
  Receive Date: 20050103
  Receipt Date: 20041226
  Transmission Date: 20050727
  Serious: Yes (Hospitalization)
  Sender: FDA-Public Use
  Company Number: CN-JNJFOC-20041206961

PATIENT
  Age: 60 Year
  Sex: Female

DRUGS (4)
  1. DURAGESIC [Suspect]
     Route: 062
  2. CALCITONIN [Concomitant]
  3. NSAID [Concomitant]
  4. TRAMADOL HCL [Concomitant]

REACTIONS (3)
  - HYPERTENSION [None]
  - NAUSEA [None]
  - VOMITING [None]
